FAERS Safety Report 4921170-2 (Version None)
Quarter: 2006Q1

REPORT INFORMATION
  Report Type: 
  Country: None (occurrence: None)
  Receive Date: 20060217
  Receipt Date: 20060207
  Transmission Date: 20060701
  Serious: Yes (Death, Hospitalization)
  Sender: FDA-Public Use
  Company Number: 2006BL000749

PATIENT
  Sex: Female

DRUGS (10)
  1. MINMS PREDNISOLONE SODIUM PHOSPHATE (PREDNISOLONE SODIUM PHOSPHATE) [Suspect]
     Indication: DRUG USE FOR UNKNOWN INDICATION
  2. SPIRIVA [Suspect]
     Indication: CHRONIC OBSTRUCTIVE PULMONARY DISEASE
     Dosage: 18 MICROGRAMS;DAILY;OROPHARYNGEAL
     Route: 049
  3. VENTOLIN [Suspect]
     Indication: DRUG USE FOR UNKNOWN INDICATION
     Dosage: 2.5 MILLIGRAMS;DAILY
  4. FLIXOTIDE ^ALLEN + HANBURYS^ (FLUTICASONE PROPIONATE) [Suspect]
     Indication: DRUG USE FOR UNKNOWN INDICATION
     Dosage: OROPHARYNGEAL
     Route: 049
  5. CANESTEN (CLOTRIMAZOLE) [Suspect]
     Indication: DRUG USE FOR UNKNOWN INDICATION
  6. ASPIRIN [Suspect]
     Indication: DRUG USE FOR UNKNOWN INDICATION
     Dosage: 75 MILLIGRAM; DAILY
  7. CALCICHEW-D3 (LEKOVIT CA) [Suspect]
     Indication: DRUG USE FOR UNKNOWN INDICATION
  8. GAVISCON [Suspect]
  9. PANTOPRAZOLE SODIUM [Suspect]
  10. RAMIPRIL [Suspect]

REACTIONS (3)
  - CARDIAC FAILURE [None]
  - PANCREATITIS ACUTE [None]
  - PERITONITIS [None]
